FAERS Safety Report 16358178 (Version 6)
Quarter: 2020Q2

REPORT INFORMATION
  Report Type: Spontaneous
  Country: US (occurrence: US)
  Receive Date: 20190527
  Receipt Date: 20200528
  Transmission Date: 20200713
  Serious: No
  Sender: FDA-Public Use
  Company Number: US-BRISTOL-MYERS SQUIBB COMPANY-BMS-2019-050941

PATIENT
  Age: 33 Year
  Sex: Male

DRUGS (1)
  1. SPRYCEL [Suspect]
     Active Substance: DASATINIB
     Indication: CHRONIC MYELOID LEUKAEMIA
     Dosage: 100 MILLIGRAM, QD
     Route: 048
     Dates: start: 20190301

REACTIONS (14)
  - Constipation [Unknown]
  - Nasopharyngitis [Unknown]
  - Abdominal pain upper [Not Recovered/Not Resolved]
  - Bone pain [Unknown]
  - Musculoskeletal stiffness [Not Recovered/Not Resolved]
  - Arthralgia [Unknown]
  - Myalgia [Unknown]
  - Dizziness [Unknown]
  - Pain [Unknown]
  - Disorientation [Unknown]
  - Dehydration [Unknown]
  - Abdominal discomfort [Unknown]
  - Asthenia [Unknown]
  - Headache [Unknown]

NARRATIVE: CASE EVENT DATE: 20200523
